FAERS Safety Report 25632139 (Version 1)
Quarter: 2025Q3

REPORT INFORMATION
  Report Type: Spontaneous
  Country: US (occurrence: None)
  Receive Date: 20250731
  Receipt Date: 20250731
  Transmission Date: 20251021
  Serious: Yes (Death)
  Sender: FDA-CTU
  Company Number: None

PATIENT
  Age: 63 Year
  Sex: Female

DRUGS (13)
  1. MYCOPHENOLIC ACID [Suspect]
     Active Substance: MYCOPHENOLIC ACID
     Indication: Kidney transplant rejection
     Dosage: 360MG BID ORAL
     Route: 048
  2. MYCOPHENOLIC ACID [Suspect]
     Active Substance: MYCOPHENOLIC ACID
  3. TACROLIMUS [Suspect]
     Active Substance: TACROLIMUS
     Dosage: 1MG BID ORAL
     Route: 048
  4. Budesonide 3mg cap [Concomitant]
  5. Tacrolimus 1 mg and 0.5mg [Concomitant]
  6. Coreg 25mg [Concomitant]
  7. VALGANCICLOVIR HYDROCHLORIDE [Concomitant]
     Active Substance: VALGANCICLOVIR HYDROCHLORIDE
  8. PREDNISONE [Concomitant]
     Active Substance: PREDNISONE
  9. Sodium Bicarbonate 10gr [Concomitant]
  10. Hydralazine 25 [Concomitant]
  11. Mycophenolic Acid 360 [Concomitant]
  12. Wes-phos 250 [Concomitant]
  13. Bactrim SS 400/80 [Concomitant]

REACTIONS (1)
  - Death [None]

NARRATIVE: CASE EVENT DATE: 20250727
